FAERS Safety Report 7954912-2 (Version None)
Quarter: 2011Q4

REPORT INFORMATION
  Report Type: 
  Country: None (occurrence: None)
  Receive Date: 20111202
  Receipt Date: 20111129
  Transmission Date: 20120403
  Serious: Yes (Disabling)
  Sender: FDA-Public Use
  Company Number: FR-AMGEN-FRACT2011063234

PATIENT
  Age: 75 Year
  Sex: Male

DRUGS (2)
  1. BLINDED DENOSUMAB [Suspect]
     Indication: PROSTATE CANCER
     Dosage: UNK, QMO
     Route: 058
     Dates: start: 20080707
  2. PLACEBO [Suspect]
     Indication: PROSTATE CANCER
     Dosage: UNK, QMO
     Route: 058
     Dates: start: 20080707

REACTIONS (1)
  - OSTEONECROSIS [None]
